FAERS Safety Report 7482448-4 (Version None)
Quarter: 2011Q2

REPORT INFORMATION
  Report Type: 
  Country: None (occurrence: None)
  Receive Date: 20110516
  Receipt Date: 20110511
  Transmission Date: 20111010
  Serious: Yes (Other)
  Sender: FDA-Public Use
  Company Number: US-ABBOTT-11P-163-0705749-00

PATIENT

DRUGS (1)
  1. SYNTHROID [Suspect]
     Indication: PRODUCT USED FOR UNKNOWN INDICATION

REACTIONS (3)
  - GASTRIC BYPASS [None]
  - BLOOD THYROID STIMULATING HORMONE ABNORMAL [None]
  - HYPOTHYROIDISM [None]
